FAERS Safety Report 17886961 (Version 1)
Quarter: 2020Q2

REPORT INFORMATION
  Report Type: Spontaneous
  Country: GR (occurrence: GR)
  Receive Date: 20200611
  Receipt Date: 20200611
  Transmission Date: 20200714
  Serious: Yes (Other)
  Sender: FDA-Public Use
  Company Number: GR-009507513-2004GRC009004

PATIENT
  Age: 73 Year
  Sex: Male
  Weight: 55 kg

DRUGS (2)
  1. T4 [Concomitant]
     Active Substance: LEVOTHYROXINE
     Route: 048
  2. KEYTRUDA [Suspect]
     Active Substance: PEMBROLIZUMAB
     Indication: NON-SMALL CELL LUNG CANCER
     Dosage: 200 MILLIGRAM, EVERY 21 DAYS, CYCLICAL
     Dates: start: 20191127, end: 20200319

REACTIONS (2)
  - Toxicity to various agents [Recovering/Resolving]
  - Toxic skin eruption [Recovering/Resolving]
